FAERS Safety Report 8201767-7 (Version None)
Quarter: 2012Q1

REPORT INFORMATION
  Report Type: 
  Country: None (occurrence: None)
  Receive Date: 20120312
  Receipt Date: 20120305
  Transmission Date: 20120608
  Serious: Yes (Other)
  Sender: FDA-Public Use
  Company Number: FR-JNJFOC-20120303099

PATIENT
  Sex: Female

DRUGS (1)
  1. TRAMADOL HCL [Suspect]
     Indication: BACK PAIN
     Dosage: TWICE A DAY
     Route: 048

REACTIONS (2)
  - DRUG DEPENDENCE [None]
  - MATERNAL EXPOSURE DURING PREGNANCY [None]
